FAERS Safety Report 16270297 (Version 1)
Quarter: 2019Q2

REPORT INFORMATION
  Report Type: Spontaneous
  Country: US (occurrence: US)
  Receive Date: 20190331
  Receipt Date: 20190331
  Transmission Date: 20190711
  Serious: No
  Sender: FDA-Public Use
  Company Number: None

PATIENT
  Age: 58 Year
  Sex: Male

DRUGS (1)
  1. TALTZ [Suspect]
     Active Substance: IXEKIZUMAB
     Dosage: OTHER   SUBCONJUNTIVAL
     Route: 057
     Dates: start: 20180816, end: 20190330

REACTIONS (1)
  - Injection site pain [None]

NARRATIVE: CASE EVENT DATE: 20190331
